FAERS Safety Report 4293650-7 (Version None)
Quarter: 2004Q1

REPORT INFORMATION
  Report Type: 
  Country: None (occurrence: None)
  Receive Date: 20040212
  Receipt Date: 20031219
  Transmission Date: 20041129
  Serious: Yes (Life-Threatening, Hospitalization)
  Sender: FDA-Public Use
  Company Number: PHBS2003JP14316

PATIENT
  Age: 61 Year
  Sex: Male

DRUGS (2)
  1. DIOVAN [Suspect]
     Indication: HYPERTENSION
     Dosage: 80 MG, QD
     Route: 048
     Dates: start: 20030404, end: 20031218
  2. AMLODIN [Suspect]
     Indication: HYPERTENSION
     Dosage: 5 MG/DAY
     Route: 048
     Dates: start: 19960830, end: 20031218

REACTIONS (19)
  - AGITATION [None]
  - ALCOHOL USE [None]
  - ANOREXIA [None]
  - COGNITIVE DISORDER [None]
  - COUGH [None]
  - CYANOSIS [None]
  - DYSPNOEA [None]
  - FEELING ABNORMAL [None]
  - HAEMOGLOBIN DECREASED [None]
  - HEPATIC ENZYME INCREASED [None]
  - HYPERTENSION [None]
  - INTERSTITIAL LUNG DISEASE [None]
  - INTUBATION [None]
  - LABORATORY TEST ABNORMAL [None]
  - LIVER DISORDER [None]
  - LUNG INFILTRATION [None]
  - MALAISE [None]
  - PYREXIA [None]
  - STUPOR [None]
